FAERS Safety Report 24648072 (Version 1)
Quarter: 2024Q4

REPORT INFORMATION
  Report Type: Report from Study
  Country: US (occurrence: US)
  Receive Date: 20241121
  Receipt Date: 20241121
  Transmission Date: 20250115
  Serious: Yes (Other)
  Sender: MYLAN
  Company Number: US-AMGEN-USASL2017021811

PATIENT
  Sex: Male

DRUGS (4)
  1. LYRICA [Suspect]
     Active Substance: PREGABALIN
     Indication: Neuropathy peripheral
     Dosage: 350 MILLIGRAM, QD (DAILY)
     Route: 065
  2. LYRICA [Suspect]
     Active Substance: PREGABALIN
     Dosage: UNK
     Route: 065
  3. ENBREL [Suspect]
     Active Substance: ETANERCEPT
     Indication: Rheumatoid arthritis
     Dosage: UNK
     Route: 065
  4. ENBREL [Suspect]
     Active Substance: ETANERCEPT
     Dosage: 50 MILLIGRAM, QW(EVERY WEEK)
     Route: 065

REACTIONS (6)
  - Diabetes mellitus [Unknown]
  - Neuropathy peripheral [Unknown]
  - Brain fog [Unknown]
  - Sensitivity to weather change [Unknown]
  - Ill-defined disorder [Unknown]
  - Cardiac disorder [Unknown]
